FAERS Safety Report 8363302-2 (Version None)
Quarter: 2012Q2

REPORT INFORMATION
  Report Type: 
  Country: None (occurrence: None)
  Receive Date: 20120514
  Receipt Date: 20120504
  Transmission Date: 20120825
  Serious: Yes (Hospitalization)
  Sender: FDA-Public Use
  Company Number: DKLU1079544

PATIENT
  Age: 83 Year
  Sex: Female

DRUGS (11)
  1. CLOBAZAM [Suspect]
     Indication: PRODUCT USED FOR UNKNOWN INDICATION
     Dosage: 10 MG MILLIGRAM (S), 3 IN 1 D, ORAL
     Route: 048
     Dates: start: 20111108, end: 20120220
  2. LYRICA [Suspect]
     Indication: PRODUCT USED FOR UNKNOWN INDICATION
     Dosage: 50 MG MILLIGRAM(S), 1 IN 1 D)
     Dates: start: 20120101
  3. LEXOMIL (BROMAZEPAM) (6 MG, TABLET) [Suspect]
     Indication: PRODUCT USED FOR UNKNOWN INDICATION
     Dosage: 6 MG MILLIGRAM(S), 1 IN 1 D, ORAL)
     Route: 048
     Dates: start: 20120101
  4. DISCOTRINE (GLYCERYL TRINITRATE) [Concomitant]
  5. ALDACTONE [Concomitant]
  6. SULFARLEM (ANETHOLE TRITHIONE) [Concomitant]
  7. PROCORALAN (IVABRADINE HYDROCHLORIDE) [Concomitant]
  8. POLYETHYLENE GLYCOL [Concomitant]
  9. FENTANYL [Suspect]
     Indication: PRODUCT USED FOR UNKNOWN INDICATION
     Dosage: 1 DF DOSAGE FORM, TRANSDRMAL
     Route: 062
     Dates: start: 20111108, end: 20120220
  10. FUROSEMIDE [Concomitant]
  11. RABEPRAZOLE SODIUM [Concomitant]

REACTIONS (6)
  - RESPIRATORY DISTRESS [None]
  - DISTURBANCE IN ATTENTION [None]
  - RESPIRATORY ACIDOSIS [None]
  - COMA [None]
  - HYPONATRAEMIA [None]
  - OVERDOSE [None]
